FAERS Safety Report 10045848 (Version 1)
Quarter: 2014Q1

REPORT INFORMATION
  Report Type: Spontaneous
  Country: US (occurrence: US)
  Receive Date: 20140329
  Receipt Date: 20140329
  Transmission Date: 20141002
  Serious: Yes (Life-Threatening)
  Sender: FDA-Public Use
  Company Number: US-ROCHE-1367626

PATIENT
  Age: 27 Year
  Sex: Female

DRUGS (4)
  1. ZELBORAF [Suspect]
     Indication: PRODUCT USED FOR UNKNOWN INDICATION
     Route: 048
  2. ZELBORAF [Suspect]
     Route: 048
  3. GABAPENTIN [Concomitant]
  4. TRAMADOL [Concomitant]

REACTIONS (10)
  - Venous occlusion [Unknown]
  - Thrombosis [Unknown]
  - Vascular compression [Unknown]
  - Pain [Unknown]
  - Neoplasm progression [Unknown]
  - Heart rate increased [Unknown]
  - Cough [Not Recovered/Not Resolved]
  - Fatigue [Unknown]
  - Arthralgia [Not Recovered/Not Resolved]
  - Abasia [Unknown]
